FAERS Safety Report 19919119 (Version 8)
Quarter: 2024Q3

REPORT INFORMATION
  Report Type: Report from Study
  Country: AU (occurrence: AU)
  Receive Date: 20211004
  Receipt Date: 20240716
  Transmission Date: 20241017
  Serious: Yes (Other)
  Sender: TAKEDA
  Company Number: AU-TAKEDA-2021TUS054218

PATIENT
  Age: 44 Year
  Sex: Female

DRUGS (5)
  1. VEDOLIZUMAB [Suspect]
     Active Substance: VEDOLIZUMAB
     Indication: Colitis ulcerative
     Dosage: 300 MILLIGRAM
     Route: 042
     Dates: start: 20210810
  2. VEDOLIZUMAB [Suspect]
     Active Substance: VEDOLIZUMAB
     Dosage: 300 MILLIGRAM
     Route: 042
  3. VEDOLIZUMAB [Suspect]
     Active Substance: VEDOLIZUMAB
     Dosage: 300 MILLIGRAM
     Route: 042
  4. VEDOLIZUMAB [Suspect]
     Active Substance: VEDOLIZUMAB
     Dosage: 300 MILLIGRAM
     Route: 042
  5. VEDOLIZUMAB [Suspect]
     Active Substance: VEDOLIZUMAB
     Dosage: 300 MILLIGRAM
     Route: 042

REACTIONS (17)
  - Haematochezia [Unknown]
  - Loss of consciousness [Unknown]
  - Face injury [Unknown]
  - Dizziness [Unknown]
  - Hypoaesthesia [Recovered/Resolved]
  - Nasopharyngitis [Not Recovered/Not Resolved]
  - Influenza [Not Recovered/Not Resolved]
  - Vertigo [Recovered/Resolved]
  - Chills [Recovered/Resolved]
  - Mucous stools [Unknown]
  - Respiratory symptom [Recovering/Resolving]
  - Infusion site paraesthesia [Recovered/Resolved]
  - Malaise [Unknown]
  - Inappropriate schedule of product administration [Recovered/Resolved]
  - Fatigue [Unknown]
  - COVID-19 [Unknown]
  - Product supply issue [Unknown]

NARRATIVE: CASE EVENT DATE: 20210901
